FAERS Safety Report 5479256-2 (Version None)
Quarter: 2007Q4

REPORT INFORMATION
  Report Type: 
  Country: None (occurrence: None)
  Receive Date: 20071008
  Receipt Date: 20070928
  Transmission Date: 20080405
  Serious: Yes (Hospitalization, Other)
  Sender: FDA-Public Use
  Company Number: PHBS2007JP15518

PATIENT
  Age: 86 Year
  Sex: Male
  Weight: 59.2 kg

DRUGS (7)
  1. DICLOFENAC SODIUM [Suspect]
     Indication: SERONEGATIVE ARTHRITIS
     Route: 048
     Dates: start: 20050201, end: 20060701
  2. VALSARTAN [Concomitant]
     Route: 048
  3. FUROSEMIDE [Concomitant]
     Route: 048
  4. PREDNISOLONE [Concomitant]
     Route: 048
  5. LANSOPRAZOLE [Concomitant]
     Route: 048
  6. MISOPROSTOL [Concomitant]
     Route: 048
  7. URSODIOL [Concomitant]
     Route: 048

REACTIONS (7)
  - BLOOD ALBUMIN INCREASED [None]
  - COLITIS COLLAGENOUS [None]
  - COLONOSCOPY [None]
  - DIARRHOEA [None]
  - HAEMOGLOBIN DECREASED [None]
  - HYPOPROTEINAEMIA [None]
  - RED BLOOD CELL COUNT DECREASED [None]
